FAERS Safety Report 5551623-8 (Version None)
Quarter: 2007Q4

REPORT INFORMATION
  Report Type: 
  Country: None (occurrence: None)
  Receive Date: 20071212
  Receipt Date: 20071130
  Transmission Date: 20080405
  Serious: Yes (Other)
  Sender: FDA-Public Use
  Company Number: FR-PFIZER INC-2007086203

PATIENT
  Sex: Female
  Weight: 60 kg

DRUGS (2)
  1. CELEBREX [Suspect]
     Indication: ARTHRALGIA
     Route: 048
     Dates: start: 20020201, end: 20020401
  2. CELEBREX [Suspect]
     Indication: OSTEOARTHRITIS

REACTIONS (3)
  - BLISTER [None]
  - SKIN EXFOLIATION [None]
  - VAGINAL INFECTION [None]
